FAERS Safety Report 15462240 (Version 1)
Quarter: 2018Q4

REPORT INFORMATION
  Report Type: Spontaneous
  Country: US (occurrence: US)
  Receive Date: 20181003
  Receipt Date: 20181003
  Transmission Date: 20190204
  Serious: Yes (Death, Life-Threatening, Hospitalization, Other)
  Sender: FDA-Public Use
  Company Number: US-BAXTER-2018BAX024582

PATIENT
  Age: 28 Year
  Sex: Male

DRUGS (20)
  1. KETAMINE [Suspect]
     Active Substance: KETAMINE
     Dosage: MAXIMUM DOSE AFTER WHICH WEANED OFF OF KETAMINE OVER TWO DAYS
     Route: 041
  2. MIDAZOLAM HYDROCHLORIDE INJECTION, USP [Suspect]
     Active Substance: MIDAZOLAM HYDROCHLORIDE
     Dosage: MAXIMUM DOSE
     Route: 041
  3. MIDAZOLAM HYDROCHLORIDE INJECTION, USP [Suspect]
     Active Substance: MIDAZOLAM HYDROCHLORIDE
     Dosage: ON HOSPITAL DAY 9
     Route: 041
  4. PHENYTOIN. [Concomitant]
     Active Substance: PHENYTOIN
     Indication: STATUS EPILEPTICUS
     Route: 065
  5. TIAGABINE [Concomitant]
     Active Substance: TIAGABINE
     Indication: STATUS EPILEPTICUS
     Route: 065
  6. FENTANYL. [Concomitant]
     Active Substance: FENTANYL
     Indication: STATUS EPILEPTICUS
     Dosage: HIGH-DOSE
     Route: 065
  7. VIGABATRIN. [Concomitant]
     Active Substance: VIGABATRIN
     Indication: STATUS EPILEPTICUS
     Route: 065
  8. FELBAMATE. [Concomitant]
     Active Substance: FELBAMATE
     Indication: STATUS EPILEPTICUS
     Route: 065
  9. CLOBAZAM. [Concomitant]
     Active Substance: CLOBAZAM
     Indication: STATUS EPILEPTICUS
     Route: 065
  10. ESLICARBAZEPINE [Concomitant]
     Active Substance: ESLICARBAZEPINE
     Indication: STATUS EPILEPTICUS
     Route: 065
  11. MIDAZOLAM HYDROCHLORIDE INJECTION, USP [Suspect]
     Active Substance: MIDAZOLAM HYDROCHLORIDE
     Indication: STATUS EPILEPTICUS
     Dosage: ON HOSPITAL DAY 13
     Route: 041
  12. KETAMINE [Suspect]
     Active Substance: KETAMINE
     Dosage: ON HOSPITAL DAY 13
     Route: 041
  13. LORAZEPAM. [Concomitant]
     Active Substance: LORAZEPAM
     Indication: STATUS EPILEPTICUS
     Route: 065
  14. CLONAZEPAM. [Concomitant]
     Active Substance: CLONAZEPAM
     Indication: STATUS EPILEPTICUS
     Route: 065
  15. LEVETIRACETAM. [Concomitant]
     Active Substance: LEVETIRACETAM
     Indication: STATUS EPILEPTICUS
     Route: 065
  16. TOPIRAMATE. [Concomitant]
     Active Substance: TOPIRAMATE
     Indication: STATUS EPILEPTICUS
     Route: 065
  17. PROPOFOL. [Concomitant]
     Active Substance: PROPOFOL
     Indication: STATUS EPILEPTICUS
     Dosage: HIGH-DOSE
     Route: 065
  18. KETAMINE [Suspect]
     Active Substance: KETAMINE
     Indication: STATUS EPILEPTICUS
     Dosage: ON HOSPITAL DAY 9
     Route: 041
  19. PHENOBARBITAL. [Concomitant]
     Active Substance: PHENOBARBITAL
     Indication: STATUS EPILEPTICUS
     Route: 065
  20. TOPIRAMATE. [Concomitant]
     Active Substance: TOPIRAMATE
     Indication: STATUS EPILEPTICUS
     Route: 065

REACTIONS (11)
  - Hyperchloraemia [Unknown]
  - Circulatory collapse [Fatal]
  - Metabolic acidosis [Fatal]
  - Blood potassium increased [Unknown]
  - Bundle branch block right [Unknown]
  - Cardiac arrest [Fatal]
  - Bradycardia [Unknown]
  - Blood lactic acid increased [Fatal]
  - Electrolyte imbalance [Fatal]
  - Blood creatinine increased [Unknown]
  - Hypotension [Unknown]
